FAERS Safety Report 12871231 (Version 1)
Quarter: 2016Q4

REPORT INFORMATION
  Report Type: Spontaneous
  Country: CN (occurrence: CN)
  Receive Date: 20161020
  Receipt Date: 20161020
  Transmission Date: 20170207
  Serious: Yes (Hospitalization)
  Sender: FDA-Public Use
  Company Number: PHHY2016CN144353

PATIENT
  Age: 64 Year
  Sex: Male
  Weight: 70 kg

DRUGS (2)
  1. TEGRETOL [Suspect]
     Active Substance: CARBAMAZEPINE
     Indication: EPILEPSY
     Dosage: 0.2 G, TID
     Route: 048
     Dates: start: 20160804, end: 20160809
  2. TEGRETOL [Suspect]
     Active Substance: CARBAMAZEPINE
     Dosage: 0.1 G, TID
     Route: 048

REACTIONS (1)
  - Ataxia [Recovering/Resolving]

NARRATIVE: CASE EVENT DATE: 20160809
